FAERS Safety Report 4933856-4 (Version None)
Quarter: 2006Q1

REPORT INFORMATION
  Report Type: 
  Country: None (occurrence: None)
  Receive Date: 20060306
  Receipt Date: 20060224
  Transmission Date: 20060701
  Serious: Yes (Hospitalization)
  Sender: FDA-Public Use
  Company Number: FR-MERCK-0602FRA00093

PATIENT
  Age: 70 Year
  Sex: Male

DRUGS (1)
  1. PROSCAR [Suspect]
     Indication: BENIGN PROSTATIC HYPERPLASIA
     Route: 048
     Dates: end: 20060222

REACTIONS (2)
  - BLOOD BILIRUBIN INCREASED [None]
  - CYTOLYTIC HEPATITIS [None]
